FAERS Safety Report 10409912 (Version 2)
Quarter: 2014Q3

REPORT INFORMATION
  Report Type: Spontaneous
  Country: IT (occurrence: None)
  Receive Date: 20140703
  Receipt Date: 20140722
  Transmission Date: 20150326
  Serious: Yes (Other)
  Sender: FDA-Public Use
  Company Number: AUR-APL-2014-06147

PATIENT
  Age: 42 Year
  Sex: Female

DRUGS (5)
  1. CITALOPRAM (CITALOPRAM) [Suspect]
     Active Substance: CITALOPRAM HYDROBROMIDE
     Indication: PERSONALITY DISORDER
     Dosage: OROPHARINGEAL
     Route: 049
     Dates: start: 20140506, end: 20140506
  2. TEGRETOL (CARBAMAZEPINE) [Concomitant]
  3. TRITTICO (TRAZODONE HYDROCHLORIDE) [Suspect]
     Active Substance: TRAZODONE HYDROCHLORIDE
     Indication: PRODUCT USED FOR UNKNOWN INDICATION
     Route: 048
     Dates: start: 20140506, end: 20140506
  4. ZYPREXA [Concomitant]
     Active Substance: OLANZAPINE
  5. TAVOR [Suspect]
     Active Substance: LORAZEPAM
     Indication: PERSONALITY DISORDER
     Route: 048
     Dates: start: 20140506, end: 20140506

REACTIONS (3)
  - Toxicity to various agents [None]
  - Drug abuse [None]
  - Suicide attempt [None]

NARRATIVE: CASE EVENT DATE: 20140506
